FAERS Safety Report 5104502-4 (Version None)
Quarter: 2006Q3

REPORT INFORMATION
  Report Type: 
  Country: None (occurrence: None)
  Receive Date: 20060914
  Receipt Date: 20060628
  Transmission Date: 20061208
  Serious: Yes (Death, Hospitalization)
  Sender: FDA-Public Use
  Company Number: US-BRISTOL-MYERS SQUIBB COMPANY-13426945

PATIENT
  Age: 51 Year
  Sex: Male

DRUGS (8)
  1. ORENCIA [Suspect]
     Indication: RHEUMATOID ARTHRITIS
     Route: 042
     Dates: end: 20060531
  2. PREDNISONE TAB [Concomitant]
  3. MOTRIN [Concomitant]
  4. ACTOS [Concomitant]
  5. BYETTA [Concomitant]
  6. TESTOSTERONE [Concomitant]
  7. OXYCONTIN [Concomitant]
  8. VALTREX [Concomitant]

REACTIONS (2)
  - PNEUMONIA [None]
  - RESPIRATORY FAILURE [None]
